FAERS Safety Report 18862963 (Version 1)
Quarter: 2021Q1

REPORT INFORMATION
  Report Type: Spontaneous
  Country: FR (occurrence: FR)
  Receive Date: 20210208
  Receipt Date: 20210208
  Transmission Date: 20210420
  Serious: Yes (Hospitalization)
  Sender: FDA-Public Use
  Company Number: FR-INDIVIOR LIMITED-INDV-127422-2020

PATIENT

DRUGS (3)
  1. RITALINE [Suspect]
     Active Substance: METHYLPHENIDATE HYDROCHLORIDE
     Dosage: 1 DOSAGE FORM, AS NECESSARY
     Route: 065
     Dates: start: 20201030
  2. RITALINE [Suspect]
     Active Substance: METHYLPHENIDATE HYDROCHLORIDE
     Indication: DRUG ABUSE
     Dosage: 1 DOSAGE FORM, AS NECESSARY
     Route: 042
     Dates: start: 202004, end: 2020
  3. SUBUTEX [Suspect]
     Active Substance: BUPRENORPHINE HYDROCHLORIDE
     Indication: DRUG WITHDRAWAL MAINTENANCE THERAPY
     Dosage: 1 DOSAGE FORM, AS NECESSARY
     Route: 042

REACTIONS (5)
  - Drug use disorder [Not Recovered/Not Resolved]
  - Agitation [Recovering/Resolving]
  - Drug abuse [Not Recovered/Not Resolved]
  - Dermo-hypodermitis [Not Recovered/Not Resolved]
  - Intentional product use issue [Unknown]

NARRATIVE: CASE EVENT DATE: 202004
